FAERS Safety Report 6291873-9 (Version None)
Quarter: 2009Q3

REPORT INFORMATION
  Report Type: 
  Country: None (occurrence: None)
  Receive Date: 20090729
  Receipt Date: 20090715
  Transmission Date: 20100115
  Serious: Yes (Hospitalization, Other)
  Sender: FDA-Public Use
  Company Number: MC200900254

PATIENT
  Age: 82 Year
  Sex: Male
  Weight: 90.7 kg

DRUGS (8)
  1. ANGIOMAX [Suspect]
     Indication: STENT PLACEMENT
     Dates: start: 20090608
  2. XANAX [Concomitant]
  3. BUSPAR [Concomitant]
  4. HEART ARRHYTHMIA MEDICATIONS [Concomitant]
  5. AMIODARONE HCL [Concomitant]
  6. ANTIBIOTICS [Concomitant]
  7. DEVELOX COUMADIN /00014802/ (WARFARIN SODIUM) [Concomitant]
  8. HEPARIN [Concomitant]

REACTIONS (6)
  - DIALYSIS [None]
  - HYPOAESTHESIA [None]
  - PRURITUS [None]
  - RENAL FAILURE [None]
  - SENSORY LOSS [None]
  - TELANGIECTASIA [None]
